FAERS Safety Report 10217168 (Version 2)
Quarter: 2015Q2

REPORT INFORMATION
  Report Type: Spontaneous
  Country: JP (occurrence: JP)
  Receive Date: 20140604
  Receipt Date: 20150527
  Transmission Date: 20150821
  Serious: Yes (Other)
  Sender: FDA-Public Use
  Company Number: PHHY2014JP065295

PATIENT
  Age: 81 Year
  Sex: Female

DRUGS (1)
  1. DONEPEZIL [Suspect]
     Active Substance: DONEPEZIL
     Indication: DEMENTIA ALZHEIMER^S TYPE
     Dosage: 5 MG, QD
     Route: 065

REACTIONS (7)
  - Muscle contractions involuntary [Recovered/Resolved]
  - Posture abnormal [Recovered/Resolved]
  - Dropped head syndrome [Recovered/Resolved]
  - Muscle spasms [Recovered/Resolved]
  - Dystonia [Recovered/Resolved]
  - Torticollis [Recovered/Resolved]
  - Atrophy [Recovered/Resolved]
